FAERS Safety Report 7458911-9 (Version None)
Quarter: 2011Q2

REPORT INFORMATION
  Report Type: 
  Country: None (occurrence: None)
  Receive Date: 20110426
  Receipt Date: 20110415
  Transmission Date: 20111010
  Serious: Yes (Death)
  Sender: FDA-Public Use
  Company Number: FK201100779

PATIENT
  Sex: Female

DRUGS (5)
  1. DOXORUBICIN HYDROCHLORIDE [Suspect]
     Indication: BREAST CANCER
  2. FLUOROURACIL [Concomitant]
  3. EPIRUBICIN [Suspect]
     Indication: BREAST CANCER
  4. CYCLOPHOSPHAMIDE [Suspect]
     Indication: BREAST CANCER
  5. METHOTREXATE [Suspect]
     Indication: BREAST CANCER

REACTIONS (3)
  - BREAST CANCER STAGE IV [None]
  - DRUG EXPOSURE DURING PREGNANCY [None]
  - NEOPLASM PROGRESSION [None]
